FAERS Safety Report 6309075-6 (Version None)
Quarter: 2009Q3

REPORT INFORMATION
  Report Type: 
  Country: None (occurrence: None)
  Receive Date: 20090814
  Receipt Date: 20090807
  Transmission Date: 20100115
  Serious: Yes (Hospitalization)
  Sender: FDA-Public Use
  Company Number: US-BIOGENIDEC-2009BI025285

PATIENT
  Age: 55 Year
  Sex: Female

DRUGS (2)
  1. AVONEX [Suspect]
     Indication: MULTIPLE SCLEROSIS
     Route: 030
  2. AVONEX [Suspect]
     Route: 030
     Dates: start: 20030110

REACTIONS (6)
  - GAS POISONING [None]
  - LARYNGEAL INJURY [None]
  - MULTIPLE SCLEROSIS RELAPSE [None]
  - RESPIRATORY ARREST [None]
  - THERMAL BURN [None]
  - TRAUMATIC LUNG INJURY [None]
